FAERS Safety Report 8354343-X (Version None)
Quarter: 2012Q2

REPORT INFORMATION
  Report Type: 
  Country: None (occurrence: None)
  Receive Date: 20120511
  Receipt Date: 20120507
  Transmission Date: 20120825
  Serious: Yes (Hospitalization)
  Sender: FDA-Public Use
  Company Number: JP-B.I. PHARMACEUTICALS,INC./RIDGEFIELD-2012-BP-06299NB

PATIENT
  Sex: Male
  Weight: 42.5 kg

DRUGS (2)
  1. ZITHROMAX [Concomitant]
     Indication: TRACHEOBRONCHITIS MYCOPLASMAL
     Dosage: 500 MG
     Route: 048
     Dates: start: 20120330, end: 20120401
  2. CATAPRES [Suspect]
     Indication: CARDIAC STRESS TEST
     Dosage: 300 MCG
     Route: 048
     Dates: start: 20120403, end: 20120403

REACTIONS (3)
  - BLOOD PRESSURE DECREASED [None]
  - SOMNOLENCE [None]
  - NAUSEA [None]
